FAERS Safety Report 8473919-2 (Version None)
Quarter: 2012Q2

REPORT INFORMATION
  Report Type: 
  Country: None (occurrence: None)
  Receive Date: 20120628
  Receipt Date: 20120315
  Transmission Date: 20120825
  Serious: Yes (Other)
  Sender: FDA-Public Use
  Company Number: US-MYLANLABS-2012S1002507

PATIENT
  Age: 61 Year
  Sex: Male

DRUGS (10)
  1. CLOZAPINE [Suspect]
     Indication: SCHIZOPHRENIA
     Route: 048
     Dates: end: 20120120
  2. ACTOS [Concomitant]
     Route: 048
  3. LITHIUM CARBONATE [Concomitant]
     Route: 048
  4. PRAVASTATIN SODIUM [Concomitant]
     Route: 048
  5. GEMFIBROZIL [Concomitant]
     Route: 048
  6. CLOZAPINE [Suspect]
     Route: 048
     Dates: start: 20120123, end: 20120101
  7. METOPROLOL SUCCINATE [Concomitant]
     Route: 048
  8. GLIPIZIDE [Concomitant]
     Route: 048
  9. CLOZAPINE [Suspect]
     Route: 048
     Dates: end: 20120120
  10. METFORMIN HCL [Concomitant]
     Route: 048

REACTIONS (1)
  - LEUKOPENIA [None]
